FAERS Safety Report 9110010 (Version 1)
Quarter: 2013Q1

REPORT INFORMATION
  Report Type: Spontaneous
  Country: IT (occurrence: IT)
  Receive Date: 20130222
  Receipt Date: 20130222
  Transmission Date: 20140127
  Serious: Yes (Other)
  Sender: FDA-Public Use
  Company Number: IT-ROXANE LABORATORIES, INC.-2013-RO-00264RO

PATIENT
  Age: 46 Year
  Sex: Male
  Weight: 104 kg

DRUGS (3)
  1. CITALOPRAM [Suspect]
     Indication: DEPRESSION
     Dosage: 20 MG
  2. PEGYLATED INTERFERON-RIBAVIRIN [Suspect]
     Indication: CHRONIC HEPATITIS C
     Route: 058
  3. PEGYLATED INTERFERON-RIBAVIRIN [Suspect]
     Route: 058

REACTIONS (1)
  - Alopecia universalis [Not Recovered/Not Resolved]
